FAERS Safety Report 8785087 (Version 1)
Quarter: 2012Q4

REPORT INFORMATION
  Report Type: 
  Country: ES (occurrence: ES)
  Receive Date: 20120914
  Receipt Date: 20120914
  Transmission Date: 20130627
  Serious: Yes (Other)
  Sender: FDA-Public Use
  Company Number: ES-JNJFOC-20120902249

PATIENT
  Sex: Male

DRUGS (2)
  1. ABIRATERONE [Suspect]
     Indication: PROSTATE CANCER
     Route: 065
  2. PREDNISONE [Concomitant]
     Indication: PROSTATE CANCER

REACTIONS (1)
  - Anaemia [Unknown]
